FAERS Safety Report 7607412-3 (Version None)
Quarter: 2011Q3

REPORT INFORMATION
  Report Type: 
  Country: None (occurrence: None)
  Receive Date: 20110713
  Receipt Date: 20110701
  Transmission Date: 20111222
  Serious: Yes (Hospitalization, Other)
  Sender: FDA-Public Use
  Company Number: BR-SANOFI-AVENTIS-2011SA042164

PATIENT
  Sex: Female
  Weight: 68 kg

DRUGS (8)
  1. NOVORAPID [Concomitant]
     Indication: TYPE 2 DIABETES MELLITUS
     Dosage: BEGAN TAKING NOVORAPID 10 YEARS AGO NOS
     Route: 058
  2. OPTIPEN [Suspect]
     Indication: DEVICE THERAPY
  3. DIOVAN [Concomitant]
     Indication: BLOOD PRESSURE
     Dosage: DIOVAN 30/50 MG/TAB ORDERED AT 2 TAB/DAY
     Dates: start: 20010101
  4. SIMVASTATIN [Concomitant]
  5. ALISKIREN [Concomitant]
     Indication: BLOOD PRESSURE
     Dosage: RASILEZ 300 MG TAB 1 TAB A DAY FOR BP
  6. GALVUS [Concomitant]
     Indication: TYPE 2 DIABETES MELLITUS
     Dosage: TOOK GALVUS SINCE 2 MONTHS AGO NOS; (GALVUS 320/20 MG/TAB)
  7. ASPIRIN [Concomitant]
     Indication: THROMBOSIS PROPHYLAXIS
  8. LANTUS [Suspect]
     Dosage: 25 IU IN THE MORNING NAD 40 IU AT NIGHT
     Route: 058
     Dates: start: 20010101

REACTIONS (21)
  - CEREBROVASCULAR ACCIDENT [None]
  - VISUAL IMPAIRMENT [None]
  - HYPOGLYCAEMIA [None]
  - SYNCOPE [None]
  - URINARY TRACT INFECTION [None]
  - ANXIETY [None]
  - FATIGUE [None]
  - RENAL DISORDER [None]
  - INSOMNIA [None]
  - COLD SWEAT [None]
  - VISION BLURRED [None]
  - DIZZINESS [None]
  - PAIN IN EXTREMITY [None]
  - TREMOR [None]
  - THROMBOSIS [None]
  - EYE DISORDER [None]
  - METAMORPHOPSIA [None]
  - DEPRESSION [None]
  - HYPERGLYCAEMIA [None]
  - INTERVERTEBRAL DISC PROTRUSION [None]
  - FEELING ABNORMAL [None]
